FAERS Safety Report 14730974 (Version 1)
Quarter: 2018Q2

REPORT INFORMATION
  Report Type: Report from Study
  Country: None (occurrence: US)
  Receive Date: 20180406
  Receipt Date: 20180406
  Transmission Date: 20180711
  Serious: Yes (Other)
  Sender: FDA-Public Use
  Company Number: US-ABBVIE-18P-163-2306601-00

PATIENT
  Age: 62 Year
  Sex: Male

DRUGS (1)
  1. MAVYRET [Suspect]
     Active Substance: GLECAPREVIR\PIBRENTASVIR
     Indication: CHRONIC HEPATITIS C
     Dosage: 100/40 MG
     Route: 048
     Dates: start: 20180126

REACTIONS (7)
  - Cough [Unknown]
  - Drug abuse [Unknown]
  - Depressed mood [Unknown]
  - Peripheral swelling [Unknown]
  - Depression [Unknown]
  - Fatigue [Unknown]
  - Drug dependence [Unknown]

NARRATIVE: CASE EVENT DATE: 20180325
